FAERS Safety Report 14146427 (Version 2)
Quarter: 2018Q1

REPORT INFORMATION
  Report Type: Spontaneous
  Country: US (occurrence: US)
  Receive Date: 20171031
  Receipt Date: 20180201
  Transmission Date: 20180508
  Serious: Yes (Other)
  Sender: FDA-Public Use
  Company Number: US-GILEAD-2017-0301049

PATIENT
  Age: 65 Year
  Sex: Female

DRUGS (10)
  1. INTERFERON [Suspect]
     Active Substance: INTERFERON
     Indication: PRODUCT USED FOR UNKNOWN INDICATION
     Dosage: UNK, Q1WK
     Route: 065
     Dates: start: 1999
  2. INTERFERON [Suspect]
     Active Substance: INTERFERON
     Dosage: UNK, Q1WK
     Route: 065
     Dates: start: 2002
  3. RIBAVIRIN. [Suspect]
     Active Substance: RIBAVIRIN
     Dosage: 3 IN THE AM, 1 IN THE PM
     Route: 048
     Dates: start: 2002
  4. MILK THISTLE                       /01131701/ [Concomitant]
     Indication: LIVER DISORDER
     Dosage: UNK
  5. DANDELION ROOT [Concomitant]
     Indication: LIVER DISORDER
  6. HARVONI [Suspect]
     Active Substance: LEDIPASVIR\SOFOSBUVIR
     Indication: CHRONIC HEPATITIS C
     Dosage: UNK
     Route: 065
     Dates: start: 2002, end: 2002
  7. PEGASYS [Suspect]
     Active Substance: PEGINTERFERON ALFA-2A
     Indication: HEPATITIS C
     Dosage: UNK
     Route: 065
     Dates: start: 2003
  8. VITAMIN B12 [Concomitant]
     Active Substance: CYANOCOBALAMIN
  9. HARVONI [Suspect]
     Active Substance: LEDIPASVIR\SOFOSBUVIR
     Dosage: UNK
     Route: 065
     Dates: start: 201510
  10. RIBAVIRIN. [Suspect]
     Active Substance: RIBAVIRIN
     Indication: CHRONIC HEPATITIS C
     Dosage: 3 IN THE AM, 1 IN THE PM
     Route: 048
     Dates: start: 1999, end: 1999

REACTIONS (22)
  - Weight increased [Unknown]
  - Thyroid disorder [Unknown]
  - Gait inability [Unknown]
  - Anger [Unknown]
  - Viral load increased [Unknown]
  - Tooth loss [Unknown]
  - Synovial cyst [Unknown]
  - Fatigue [Unknown]
  - Hepatitis C [Unknown]
  - Intervertebral disc displacement [Unknown]
  - Irritable bowel syndrome [Unknown]
  - Sciatica [Unknown]
  - Plantar fasciitis [Unknown]
  - Respiration abnormal [Recovering/Resolving]
  - Spinal column stenosis [Unknown]
  - Drug ineffective [Unknown]
  - Therapy non-responder [Unknown]
  - Temperature regulation disorder [Not Recovered/Not Resolved]
  - Injury [Unknown]
  - Lung disorder [Unknown]
  - Alopecia [Not Recovered/Not Resolved]
  - Insomnia [Unknown]

NARRATIVE: CASE EVENT DATE: 1999
